FAERS Safety Report 5846898-1 (Version None)
Quarter: 2008Q3

REPORT INFORMATION
  Report Type: 
  Country: None (occurrence: None)
  Receive Date: 20080815
  Receipt Date: 20080803
  Transmission Date: 20090109
  Serious: Yes (Other)
  Sender: FDA-Public Use
  Company Number: US-PFIZER INC-2008065298

PATIENT
  Sex: Male
  Weight: 63.5 kg

DRUGS (8)
  1. CHANTIX [Suspect]
     Indication: SMOKING CESSATION THERAPY
     Dates: start: 20080701, end: 20080730
  2. PROGRAF [Concomitant]
     Indication: PANCREAS TRANSPLANT
  3. PROGRAF [Concomitant]
     Indication: SMALL INTESTINE TRANSPLANT
  4. CITALOPRAM HYDROBROMIDE [Concomitant]
  5. FLUDROCORTISONE ACETATE [Concomitant]
  6. LOPERAMIDE HCL [Concomitant]
  7. MAGNESIUM GLUCONATE [Concomitant]
  8. LOTRIMIN [Concomitant]

REACTIONS (15)
  - ABNORMAL BEHAVIOUR [None]
  - ABNORMAL DREAMS [None]
  - AGGRESSION [None]
  - ANGER [None]
  - DEPRESSION [None]
  - HOMICIDAL IDEATION [None]
  - INSOMNIA [None]
  - MEMORY IMPAIRMENT [None]
  - NIGHTMARE [None]
  - PSYCHIATRIC SYMPTOM [None]
  - ROAD TRAFFIC ACCIDENT [None]
  - SCREAMING [None]
  - SLEEP TALKING [None]
  - SOMNAMBULISM [None]
  - SUICIDAL IDEATION [None]
